FAERS Safety Report 6195455-9 (Version None)
Quarter: 2009Q2

REPORT INFORMATION
  Report Type: 
  Country: None (occurrence: None)
  Receive Date: 20090519
  Receipt Date: 20090507
  Transmission Date: 20091009
  Serious: Yes (Death, Other)
  Sender: FDA-Public Use
  Company Number: CH-PFIZER INC-2009209299

PATIENT
  Age: 46 Year

DRUGS (11)
  1. XANAX [Suspect]
     Dosage: 0.5 MG, 2X/DAY
     Route: 048
  2. MORPHINE HCL ELIXIR [Interacting]
     Dosage: 2 MG, 3X/DAY
     Route: 058
  3. CODEINE PHOSPHATE HEMIHYDRATE [Interacting]
     Dosage: 25 MG, 2X/DAY
     Route: 048
  4. ZOLPIDEM TARTRATE [Interacting]
     Dosage: 5 MG, 1X/DAY
     Route: 048
  5. MEPHAMESON [Concomitant]
     Dosage: 2 MG, 3X/DAY
     Route: 042
  6. NEUPOGEN [Concomitant]
     Dosage: 300 UG, 1X/DAY
     Route: 058
  7. FOLVITE [Concomitant]
     Dosage: 5 MG, 1X/DAY
     Route: 048
  8. TORASEMIDE [Concomitant]
     Dosage: 10 MG, 1X/DAY
     Route: 048
  9. ALLOPURINOL [Concomitant]
     Dosage: 300 MG, 1X/DAY
     Route: 048
  10. MYCOSTATIN [Concomitant]
     Dosage: 1 ML, 2X/DAY
     Route: 048
  11. LAXOBERON [Concomitant]
     Dosage: 20 GTT, 1X/DAY
     Route: 048

REACTIONS (1)
  - RESPIRATORY DEPRESSION [None]
